FAERS Safety Report 14579714 (Version 4)
Quarter: 2018Q2

REPORT INFORMATION
  Report Type: Spontaneous
  Country: GB (occurrence: GB)
  Receive Date: 20180227
  Receipt Date: 20180418
  Transmission Date: 20180711
  Serious: Yes (Death)
  Sender: FDA-Public Use
  Company Number: GB-ROCHE-2074538

PATIENT
  Age: 23 Year
  Sex: Male

DRUGS (6)
  1. PREGABALIN. [Interacting]
     Active Substance: PREGABALIN
     Indication: PRODUCT USED FOR UNKNOWN INDICATION
     Dosage: UNK
     Route: 048
     Dates: start: 20170317
  2. ZOPICLONE [Interacting]
     Active Substance: ZOPICLONE
     Route: 048
  3. PREGABALIN. [Interacting]
     Active Substance: PREGABALIN
     Dosage: UNK
     Route: 048
  4. DIAZEPAM. [Suspect]
     Active Substance: DIAZEPAM
     Indication: PRODUCT USED FOR UNKNOWN INDICATION
     Dosage: UNK
     Route: 048
     Dates: start: 20170317
  5. ZOPICLONE [Interacting]
     Active Substance: ZOPICLONE
     Indication: PRODUCT USED FOR UNKNOWN INDICATION
     Dosage: UNK
     Route: 048
  6. COCAINE [Interacting]
     Active Substance: COCAINE
     Indication: PRODUCT USED FOR UNKNOWN INDICATION
     Dosage: UNK
     Route: 048

REACTIONS (10)
  - Incoherent [Fatal]
  - Alcohol interaction [Fatal]
  - Drug abuse [Fatal]
  - Fall [Fatal]
  - Cardiac failure [Fatal]
  - Drug interaction [Fatal]
  - Toxicity to various agents [Fatal]
  - Loss of consciousness [Fatal]
  - Gait disturbance [Fatal]
  - Snoring [Fatal]

NARRATIVE: CASE EVENT DATE: 20170317
